FAERS Safety Report 10843971 (Version 1)
Quarter: 2015Q1

REPORT INFORMATION
  Report Type: Report from Study
  Country: US (occurrence: US)
  Receive Date: 20150220
  Receipt Date: 20150220
  Transmission Date: 20150721
  Serious: No
  Sender: FDA-Public Use
  Company Number: US-ABBVIE-14P-163-1256255-00

PATIENT
  Sex: Female

DRUGS (3)
  1. HUMIRA [Suspect]
     Active Substance: ADALIMUMAB
     Indication: PSORIATIC ARTHROPATHY
     Dates: start: 2010, end: 2011
  2. HUMIRA [Suspect]
     Active Substance: ADALIMUMAB
     Dates: start: 2011
  3. METHOTREXATE [Concomitant]
     Active Substance: METHOTREXATE
     Indication: PSORIATIC ARTHROPATHY

REACTIONS (2)
  - Drug ineffective [Recovered/Resolved]
  - Injection site pain [Not Recovered/Not Resolved]

NARRATIVE: CASE EVENT DATE: 2010
